FAERS Safety Report 21728932 (Version 1)
Quarter: 2022Q4

REPORT INFORMATION
  Report Type: Spontaneous
  Country: US (occurrence: US)
  Receive Date: 20221214
  Receipt Date: 20221214
  Transmission Date: 20230113
  Serious: No
  Sender: FDA-Public Use
  Company Number: US-ALLERGAN-2209137US

PATIENT
  Age: 50 Year
  Sex: Female

DRUGS (1)
  1. DALVANCE [Suspect]
     Active Substance: DALBAVANCIN
     Indication: Infection
     Dosage: UNK, SINGLE
     Route: 042
     Dates: start: 202203, end: 202203

REACTIONS (1)
  - Urine abnormality [Unknown]
